FAERS Safety Report 15936555 (Version 1)
Quarter: 2019Q1

REPORT INFORMATION
  Report Type: Spontaneous
  Country: US (occurrence: US)
  Receive Date: 20190117
  Receipt Date: 20190117
  Transmission Date: 20190417
  Serious: Yes (Disabling)
  Sender: FDA-Public Use
  Company Number: None

PATIENT
  Age: 78 Year
  Sex: Female
  Weight: 76.66 kg

DRUGS (6)
  1. CEPHALEXIN. [Concomitant]
     Active Substance: CEPHALEXIN
  2. VITAMIN D [Concomitant]
     Active Substance: CHOLECALCIFEROL
  3. LOW DOSE ASPIRIN [Concomitant]
     Active Substance: ASPIRIN
  4. LISINOPRIL/HCTZ [Concomitant]
     Active Substance: HYDROCHLOROTHIAZIDE\LISINOPRIL
  5. BENADRYL [Concomitant]
     Active Substance: DIPHENHYDRAMINE HYDROCHLORIDE
  6. LETROZOLE 2.5MG TAB [Suspect]
     Active Substance: LETROZOLE
     Indication: POSTOPERATIVE CARE
     Dosage: ?          QUANTITY:1 DF DOSAGE FORM;?
     Route: 048
     Dates: start: 20180630, end: 20180718

REACTIONS (4)
  - Arthralgia [None]
  - Drug ineffective [None]
  - Insomnia [None]
  - Gait disturbance [None]

NARRATIVE: CASE EVENT DATE: 20180705
